FAERS Safety Report 8782146 (Version 1)
Quarter: 2012Q4

REPORT INFORMATION
  Report Type: Report from Study
  Country: US (occurrence: US)
  Receive Date: 20120913
  Receipt Date: 20120913
  Transmission Date: 20130627
  Serious: No
  Sender: FDA-Public Use
  Company Number: US-VERTEX PHARMACEUTICAL INC.-AE-2012-008738

PATIENT

DRUGS (14)
  1. INCIVEK [Suspect]
     Indication: HEPATITIS C
     Route: 048
     Dates: start: 20120411
  2. PEGASYS [Concomitant]
     Indication: HEPATITIS C
     Route: 058
     Dates: start: 20120411
  3. RIBASPHERE [Concomitant]
     Indication: HEPATITIS C
     Route: 048
     Dates: start: 20120411
  4. COZAAR [Concomitant]
     Route: 048
  5. COREG [Concomitant]
     Route: 048
  6. POTASSIUM CHLORIDE ER [Concomitant]
     Route: 048
  7. SPIRONOLACTONE [Concomitant]
     Route: 048
  8. CRESTOR [Concomitant]
     Route: 048
  9. HYDROXYZINE HCL [Concomitant]
     Route: 048
  10. LORCET [Concomitant]
  11. MILK THISTLE [Concomitant]
  12. CRANBERRY [Concomitant]
  13. ASPIRIN EC [Concomitant]
  14. EQL OMEPRAZOLE DR [Concomitant]

REACTIONS (2)
  - Depressed mood [Unknown]
  - Anger [Unknown]
